FAERS Safety Report 9516466 (Version 1)
Quarter: 2013Q3

REPORT INFORMATION
  Report Type: Spontaneous
  Country: DE (occurrence: DE)
  Receive Date: 20130911
  Receipt Date: 20130911
  Transmission Date: 20140515
  Serious: Yes (Life-Threatening, Hospitalization)
  Sender: FDA-Public Use
  Company Number: DE-TEVA-430299GER

PATIENT
  Age: 70 Year
  Sex: Male
  Weight: 72 kg

DRUGS (4)
  1. TERBINAFIN [Suspect]
     Indication: ONYCHOMYCOSIS
     Dosage: 250 MILLIGRAM DAILY;
     Route: 048
     Dates: start: 20130506, end: 20130617
  2. DIOVAN [Concomitant]
     Route: 048
  3. CONCOR [Concomitant]
     Route: 048
  4. XALATAN [Concomitant]

REACTIONS (5)
  - Agranulocytosis [Recovered/Resolved]
  - Dizziness [Recovered/Resolved]
  - Headache [Recovered/Resolved]
  - Monocytosis [Recovered/Resolved]
  - Gingivitis [Recovered/Resolved]
